FAERS Safety Report 6921418-9 (Version None)
Quarter: 2010Q3

REPORT INFORMATION
  Report Type: 
  Country: None (occurrence: None)
  Receive Date: 20100812
  Receipt Date: 20100730
  Transmission Date: 20110219
  Serious: Yes (Hospitalization, Other)
  Sender: FDA-Public Use
  Company Number: US-ELI_LILLY_AND_COMPANY-US201008000677

PATIENT
  Age: 71 Year
  Sex: Female

DRUGS (4)
  1. ZYPREXA [Suspect]
     Indication: SCHIZOPHRENIA
     Dosage: 5 MG, 2/D
     Route: 065
  2. RISPERDAL [Concomitant]
  3. CLONIDINE [Concomitant]
  4. DEPAKOTE [Concomitant]

REACTIONS (8)
  - ABNORMAL BEHAVIOUR [None]
  - ASTHENIA [None]
  - BLOOD PRESSURE ABNORMAL [None]
  - CONFUSIONAL STATE [None]
  - DEMENTIA [None]
  - LOGORRHOEA [None]
  - MANIA [None]
  - SUBDURAL HAEMATOMA [None]
